FAERS Safety Report 4955986-3 (Version None)
Quarter: 2006Q1

REPORT INFORMATION
  Report Type: 
  Country: None (occurrence: None)
  Receive Date: 20060328
  Receipt Date: 20051031
  Transmission Date: 20060701
  Serious: Yes (Hospitalization)
  Sender: FDA-Public Use
  Company Number: US-MERCK-0511USA00351

PATIENT
  Age: 43 Year
  Sex: Female
  Weight: 65 kg

DRUGS (10)
  1. VIOXX [Suspect]
     Indication: OSTEOARTHRITIS
     Route: 048
     Dates: start: 20030401, end: 20031001
  2. ASPIRIN [Concomitant]
     Route: 065
  3. HYDROCHLOROTHIAZIDE AND TRIAMTERENE [Concomitant]
     Route: 065
  4. HYDROCHLOROTHIAZIDE [Concomitant]
     Route: 065
  5. NITROGLYCERIN [Concomitant]
     Route: 065
  6. METHYLPREDNISOLONE [Concomitant]
     Route: 065
  7. PRAVACHOL [Concomitant]
     Route: 065
  8. AMITRIPTYLINE HYDROCHLORIDE [Concomitant]
     Route: 065
  9. ACETAMINOPHEN AND HYDROCODONE BITARTRATE [Concomitant]
     Route: 065
  10. ATENOLOL [Concomitant]
     Route: 065
     Dates: start: 19951201

REACTIONS (2)
  - CARDIAC DISORDER [None]
  - MYOCARDIAL INFARCTION [None]
